FAERS Safety Report 22181444 (Version 1)
Quarter: 2023Q2

REPORT INFORMATION
  Report Type: Report from Study
  Country: US (occurrence: US)
  Receive Date: 20230406
  Receipt Date: 20230406
  Transmission Date: 20230721
  Serious: No
  Sender: FDA-Public Use
  Company Number: US-INCYTE CORPORATION-2023IN002105

PATIENT

DRUGS (1)
  1. JAKAFI [Suspect]
     Active Substance: RUXOLITINIB
     Indication: Myeloproliferative neoplasm
     Dosage: 15 MILLIGRAM, BID
     Route: 065

REACTIONS (2)
  - Product availability issue [Unknown]
  - Off label use [Unknown]
